FAERS Safety Report 8241661-9 (Version None)
Quarter: 2012Q1

REPORT INFORMATION
  Report Type: 
  Country: None (occurrence: None)
  Receive Date: 20120328
  Receipt Date: 20120314
  Transmission Date: 20120608
  Serious: Yes (Other)
  Sender: FDA-Public Use
  Company Number: CHPA2012US004516

PATIENT
  Sex: Female

DRUGS (2)
  1. EXCEDRIN (MIGRAINE) [Suspect]
     Indication: PAIN
     Dosage: 3 DF, QD
     Route: 048
     Dates: end: 20120201
  2. FIORICET [Concomitant]
     Indication: MIGRAINE
     Dosage: 1 UNK, QHS
     Route: 048

REACTIONS (8)
  - WRIST FRACTURE [None]
  - BACK DISORDER [None]
  - MALAISE [None]
  - HYPERTENSION [None]
  - ABDOMINAL DISCOMFORT [None]
  - DIZZINESS [None]
  - OFF LABEL USE [None]
  - OVERDOSE [None]
